FAERS Safety Report 14129338 (Version 2)
Quarter: 2017Q4

REPORT INFORMATION
  Report Type: Report from Study
  Country: JP (occurrence: JP)
  Receive Date: 20171026
  Receipt Date: 20171113
  Transmission Date: 20180321
  Serious: Yes (Hospitalization, Disabling, Other)
  Sender: FDA-Public Use
  Company Number: JP-ELI_LILLY_AND_COMPANY-JP201710009293

PATIENT
  Age: 89 Year
  Sex: Female
  Weight: 41 kg

DRUGS (16)
  1. BAYASPIRIN [Suspect]
     Active Substance: ASPIRIN
     Indication: PRODUCT USED FOR UNKNOWN INDICATION
     Dosage: 200 MG, DAILY
     Route: 065
     Dates: start: 20161212, end: 20161212
  2. PANTOL                             /00223901/ [Concomitant]
     Active Substance: PANTHENOL
     Dosage: UNK
     Route: 042
     Dates: start: 20170925, end: 20170926
  3. OMEPRAZOLE                         /00661202/ [Concomitant]
     Dosage: UNK
     Route: 042
     Dates: start: 20170923, end: 20170924
  4. HEPARIN [Concomitant]
     Active Substance: HEPARIN SODIUM
     Dosage: 3000 IU, UNK
     Route: 065
  5. LACTEC D                           /01996301/ [Concomitant]
     Dosage: UNK
     Route: 042
     Dates: start: 20170923, end: 20170923
  6. HARTMANN                           /09425101/ [Concomitant]
     Dosage: UNK
     Route: 042
     Dates: start: 20170923, end: 20170923
  7. PRASUGREL HYDROCHLORIDE [Suspect]
     Active Substance: PRASUGREL HYDROCHLORIDE
     Indication: ACUTE MYOCARDIAL INFARCTION
     Dosage: 20 MG, SINGLE
     Route: 048
     Dates: start: 20161212, end: 20161212
  8. LANSOPRAZOLE. [Concomitant]
     Active Substance: LANSOPRAZOLE
     Dosage: 15 MG, DAILY
     Route: 065
     Dates: start: 20161213
  9. FAMOTIDINE. [Concomitant]
     Active Substance: FAMOTIDINE
     Dosage: UNK
     Route: 048
     Dates: start: 20170925, end: 20171005
  10. SOLITA-T3 [Concomitant]
     Active Substance: POTASSIUM CHLORIDE\SODIUM CHLORIDE\SODIUM LACTATE
     Dosage: UNK
     Route: 042
     Dates: start: 20170924, end: 20170929
  11. PRASUGREL HYDROCHLORIDE [Suspect]
     Active Substance: PRASUGREL HYDROCHLORIDE
     Dosage: 3.75 MG, DAILY
     Route: 048
     Dates: start: 20161213, end: 20170923
  12. HEPARIN [Concomitant]
     Active Substance: HEPARIN SODIUM
     Dosage: UNK
     Route: 042
     Dates: start: 20170925, end: 20170925
  13. BAYASPIRIN [Suspect]
     Active Substance: ASPIRIN
     Dosage: 100 MG, DAILY
     Route: 065
     Dates: start: 20161213, end: 20170923
  14. LANSOPRAZOLE. [Concomitant]
     Active Substance: LANSOPRAZOLE
     Dosage: UNK
     Route: 048
     Dates: start: 20171006
  15. HEPARIN [Concomitant]
     Active Substance: HEPARIN SODIUM
     Dosage: 6000 IU, UNK
     Route: 065
  16. VITAMEDIN                          /00176001/ [Concomitant]
     Dosage: UNK
     Route: 042
     Dates: start: 20170924, end: 20170926

REACTIONS (4)
  - Subdural haemorrhage [Recovered/Resolved with Sequelae]
  - Fall [Unknown]
  - Epilepsy [Not Recovered/Not Resolved]
  - Subdural haematoma [Recovered/Resolved with Sequelae]

NARRATIVE: CASE EVENT DATE: 20170923
